FAERS Safety Report 19814389 (Version 1)
Quarter: 2021Q3

REPORT INFORMATION
  Report Type: Spontaneous
  Country: NL (occurrence: NL)
  Receive Date: 20210910
  Receipt Date: 20210910
  Transmission Date: 20211014
  Serious: Yes (Death, Other)
  Sender: FDA-Public Use
  Company Number: NL-PFIZER INC-2021473956

PATIENT
  Age: 74 Year
  Sex: Female
  Weight: 67 kg

DRUGS (16)
  1. COMIRNATY [Suspect]
     Active Substance: TOZINAMERAN
     Indication: COVID-19 IMMUNISATION
     Dosage: DOSE 1, SINGLE
     Dates: start: 20210414, end: 20210414
  2. TRASTUZUMAB. [Suspect]
     Active Substance: TRASTUZUMAB
     Dosage: 8 MG/KG (LOADING DOSE)
     Dates: start: 202005, end: 20210414
  3. PERTUZUMAB. [Suspect]
     Active Substance: PERTUZUMAB
     Dosage: 420 MG MAINTENANCE(EVERY 3 WEEKS ON THE DAY TREATMENT)
     Dates: start: 202005, end: 20210414
  4. LOPERAMIDE [Concomitant]
     Active Substance: LOPERAMIDE
     Dosage: UNK
     Route: 048
     Dates: start: 20200921
  5. TRASTUZUMAB. [Suspect]
     Active Substance: TRASTUZUMAB
     Dosage: 6 MG/KG, EVERY 3 WEEKS (MAINTENANCE DOSE)
     Dates: start: 202005, end: 20210414
  6. PERTUZUMAB. [Suspect]
     Active Substance: PERTUZUMAB
     Dosage: 840 MG (LOADING DOSE)(EVERY 3 WEEKS ON THE DAY TREATMENT)
     Dates: start: 202005, end: 20210414
  7. CLEMASTINE [Concomitant]
     Active Substance: CLEMASTINE
     Dosage: 40 MG
     Dates: start: 202011
  8. METOCLOPRAMIDE. [Concomitant]
     Active Substance: METOCLOPRAMIDE
     Dosage: UNK
     Route: 048
     Dates: start: 20200921
  9. VIDISIC [Concomitant]
     Active Substance: CARBOMER
     Dosage: 1 DROP, BOTH EYES
  10. DOCETAXEL. [Suspect]
     Active Substance: DOCETAXEL
     Dosage: 75 MG/M2
     Dates: start: 202005, end: 202009
  11. ESOMEPRAZOL [ESOMEPRAZOLE] [Concomitant]
     Active Substance: ESOMEPRAZOLE
     Indication: ABDOMINAL PAIN UPPER
     Dosage: 40 MG
     Dates: start: 20200921
  12. DOCETAXEL. [Suspect]
     Active Substance: DOCETAXEL
     Dosage: UNK, EVERY 3 WEEKS
     Dates: start: 20210414
  13. CALCI BONE D3 [Concomitant]
     Active Substance: CALCIUM CARBONATE\CHOLECALCIFEROL
     Dosage: 2,5G/880IE (1000MG CA)
     Route: 048
  14. MIRTAZAPINE. [Concomitant]
     Active Substance: MIRTAZAPINE
     Dosage: UNK
     Route: 048
     Dates: start: 20200518
  15. PERTUZUMAB/TRASTUZUMAB [Suspect]
     Active Substance: PERTUZUMAB\TRASTUZUMAB
     Dosage: INJECTION FLUID DOSE EVERY 3 WEEKS
     Dates: start: 20210414
  16. CAPHOSOL [CALCIUM CHLORIDE;SODIUM CHLORIDE;SODIUM PHOSPHATE DIBASIC;SO [Concomitant]
     Indication: THERAPEUTIC GARGLE
     Dosage: UNK
     Dates: start: 20200921

REACTIONS (10)
  - Death [Fatal]
  - Cardiac disorder [Unknown]
  - Aortic valve sclerosis [Unknown]
  - Malaise [Unknown]
  - Thyroid mass [Unknown]
  - Pulmonary oedema [Unknown]
  - Pleural effusion [Unknown]
  - Emphysema [Unknown]
  - Dilatation ventricular [Unknown]
  - Arrhythmia [Fatal]

NARRATIVE: CASE EVENT DATE: 20210420
